FAERS Safety Report 4373256-1 (Version None)
Quarter: 2004Q2

REPORT INFORMATION
  Report Type: 
  Country: None (occurrence: None)
  Receive Date: 20040608
  Receipt Date: 20040211
  Transmission Date: 20050107
  Serious: Yes (Other)
  Sender: FDA-Public Use
  Company Number: FR-GLAXOSMITHKLINE-B0323222A

PATIENT
  Sex: Female
  Weight: 80 kg

DRUGS (1)
  1. RETROVIR [Suspect]
     Indication: ANTIVIRAL PROPHYLAXIS
     Dosage: 300MG CUMULATIVE DOSE
     Route: 042
     Dates: start: 20040211, end: 20040211

REACTIONS (3)
  - ACCIDENTAL OVERDOSE [None]
  - DRUG EXPOSURE DURING PREGNANCY [None]
  - NO ADVERSE DRUG EFFECT [None]
